FAERS Safety Report 13619115 (Version 1)
Quarter: 2017Q2

REPORT INFORMATION
  Report Type: Report from Study
  Country: US (occurrence: US)
  Receive Date: 20170606
  Receipt Date: 20170606
  Transmission Date: 20170830
  Serious: No
  Sender: FDA-Public Use
  Company Number: US-AMGEN-USASL2016101910

PATIENT
  Age: 78 Year
  Sex: Female
  Weight: 70.75 kg

DRUGS (6)
  1. METFORMIN HCL [Concomitant]
     Active Substance: METFORMIN HYDROCHLORIDE
     Dosage: 500 MG, 1 TABLET TWICE DAILY
     Route: 048
     Dates: start: 20150203
  2. AMLODIPINE BESILATE [Concomitant]
     Active Substance: AMLODIPINE BESYLATE
     Dosage: 10 MG, TAKE 1 TABLET DAILY
     Route: 048
     Dates: start: 20150203
  3. PROCRIT [Suspect]
     Active Substance: ERYTHROPOIETIN
     Indication: NEPHROGENIC ANAEMIA
     Dosage: 40000 UNIT, QWK
     Route: 065
  4. LABETALOL HCL [Concomitant]
     Active Substance: LABETALOL HYDROCHLORIDE
     Indication: HYPERTENSION
     Dosage: 100 MG, PRN
     Route: 048
     Dates: start: 20150526
  5. PRAVASTATIN SODIUM. [Concomitant]
     Active Substance: PRAVASTATIN SODIUM
     Dosage: 20 MG, TAKE 1 TABLET DAILY
     Route: 048
     Dates: start: 20150202
  6. LOSARTAN POTASSIUM. [Concomitant]
     Active Substance: LOSARTAN POTASSIUM
     Dosage: 50 MG, TAKE 1 TABLET EVERY DAY
     Route: 048
     Dates: start: 20160314

REACTIONS (10)
  - Conjunctival disorder [Unknown]
  - Malaise [Unknown]
  - Iris disorder [Unknown]
  - Eyelid disorder [Unknown]
  - Monoclonal gammopathy [Unknown]
  - Vitamin B12 decreased [Unknown]
  - Fatigue [Unknown]
  - General physical condition abnormal [Unknown]
  - Pupillary disorder [Unknown]
  - Haemoglobin decreased [Unknown]

NARRATIVE: CASE EVENT DATE: 20141013
